FAERS Safety Report 17587385 (Version 1)
Quarter: 2020Q1

REPORT INFORMATION
  Report Type: Report from Study
  Country: GB (occurrence: GB)
  Receive Date: 20200326
  Receipt Date: 20200326
  Transmission Date: 20200409
  Serious: Yes (Hospitalization, Other)
  Sender: FDA-Public Use
  Company Number: GB-EMD SERONO-9054397

PATIENT
  Age: 34 Year
  Sex: Female

DRUGS (3)
  1. MAVENCLAD [Suspect]
     Active Substance: CLADRIBINE
     Dosage: FIRST YEAR SECOND WEEK TREATMENT: PRESCRIBED TO TAKE TWO TABLETS ON DAY 1 AND 2, ONE TABLET FROM DAY
     Route: 048
     Dates: start: 201905
  2. MAVENCLAD [Suspect]
     Active Substance: CLADRIBINE
     Dosage: SECOND YEAR THERAPY FIRST WEEK THERAPY: TWO TABLETS ON DAYS 1 AND 2 AND ONE TABLET ON DAYS 3 TO 5.
     Route: 048
     Dates: start: 202001
  3. MAVENCLAD [Suspect]
     Active Substance: CLADRIBINE
     Indication: MULTIPLE SCLEROSIS
     Dosage: FIRST YEAR FIRST WEEK THERAPY: TWO TABLETS ON DAYS 1 AND 2 AND ONE TABLET ON DAYS 3 TO 5
     Route: 048
     Dates: start: 20181119

REACTIONS (16)
  - Sepsis [Unknown]
  - Hospitalisation [Recovered/Resolved]
  - Fall [Not Recovered/Not Resolved]
  - Muscle rigidity [Unknown]
  - Hallucination [Unknown]
  - Infection [Unknown]
  - Pain [Unknown]
  - Product dose omission [Not Recovered/Not Resolved]
  - Multiple sclerosis [Unknown]
  - Weight bearing difficulty [Not Recovered/Not Resolved]
  - Arthralgia [Unknown]
  - Localised infection [Unknown]
  - Dysstasia [Unknown]
  - Gait disturbance [Not Recovered/Not Resolved]
  - Spinal pain [Unknown]
  - Malaise [Unknown]

NARRATIVE: CASE EVENT DATE: 201811
